FAERS Safety Report 9370110 (Version 1)
Quarter: 2013Q2

REPORT INFORMATION
  Report Type: Spontaneous
  Country: BR (occurrence: BR)
  Receive Date: 20130626
  Receipt Date: 20130626
  Transmission Date: 20140414
  Serious: Yes (Other)
  Sender: FDA-Public Use
  Company Number: PHHY2013BR064741

PATIENT
  Sex: Female

DRUGS (2)
  1. PAMELOR [Suspect]
     Dosage: UNK UKN, UNK
  2. SERTRALINE HYDROCHLORIDE [Suspect]
     Dosage: UNK UKN, UNK

REACTIONS (3)
  - Dementia Alzheimer^s type [Unknown]
  - Decreased appetite [Unknown]
  - Somnolence [Unknown]
